FAERS Safety Report 24986799 (Version 1)
Quarter: 2025Q1

REPORT INFORMATION
  Report Type: Spontaneous
  Country: CN (occurrence: CN)
  Receive Date: 20250219
  Receipt Date: 20250219
  Transmission Date: 20250409
  Serious: Yes (Other)
  Sender: BAYER HEALTHCARE PHARMACEUTICALS INC.
  Company Number: CN-BAYER-2025A020398

PATIENT
  Age: 82 Year
  Sex: Male
  Weight: 58 kg

DRUGS (1)
  1. AVELOX [Suspect]
     Active Substance: MOXIFLOXACIN HYDROCHLORIDE
     Indication: Pneumonia
     Dosage: 0.4 G, QD
     Route: 041
     Dates: start: 20250203, end: 20250204

REACTIONS (6)
  - Insomnia [Recovered/Resolved]
  - Mental disorder [Recovered/Resolved]
  - Disorganised speech [Recovered/Resolved]
  - Delusion [Recovered/Resolved]
  - Emotional disorder [Recovered/Resolved]
  - Dysphoria [Recovered/Resolved]

NARRATIVE: CASE EVENT DATE: 20250204
